FAERS Safety Report 8988325 (Version 1)
Quarter: 2012Q4

REPORT INFORMATION
  Report Type: Spontaneous
  Country: US (occurrence: None)
  Receive Date: 20121220
  Receipt Date: 20121220
  Transmission Date: 20130627
  Serious: Yes (Life-Threatening, Other)
  Sender: FDA-Public Use
  Company Number: None

PATIENT
  Age: 6 Year
  Sex: Female
  Weight: 27.22 kg

DRUGS (1)
  1. MONTELUKAST SODIUM [Suspect]
     Route: 048
     Dates: start: 20120901, end: 20121031

REACTIONS (2)
  - Product substitution issue [None]
  - Drug ineffective [None]
